FAERS Safety Report 7781515-5 (Version None)
Quarter: 2011Q3

REPORT INFORMATION
  Report Type: 
  Country: None (occurrence: None)
  Receive Date: 20110923
  Receipt Date: 20110909
  Transmission Date: 20111222
  Serious: Yes (Other)
  Sender: FDA-Public Use
  Company Number: AUR-APL-2011-05016

PATIENT
  Age: 76 Year
  Sex: Female
  Weight: 67 kg

DRUGS (19)
  1. BECLOMETHASONE DIPROPIONATE [Concomitant]
  2. RAMIPRIL [Concomitant]
  3. OMEPRAZOLE [Concomitant]
  4. SLOZEM (DILTIAZEM HYDROCHLORIDE) [Concomitant]
  5. CLOPIDOGREL [Concomitant]
  6. DOCUSATE SODIUM [Concomitant]
  7. MEPTAZINOL [Concomitant]
  8. SIMVASTATIN [Suspect]
     Indication: PRODUCT USED FOR UNKNOWN INDICATION
     Dates: start: 20110725, end: 20110822
  9. SIMVASTATIN [Suspect]
     Indication: PRODUCT USED FOR UNKNOWN INDICATION
     Dates: start: 20110901
  10. HYDROXOCOBALAMIN [Concomitant]
  11. ACETAMINOPHEN [Concomitant]
  12. TRIMETHOPRIM [Concomitant]
  13. LOFEPRAMIDE [Concomitant]
  14. ZOPICLONE [Concomitant]
  15. CALCICHEW D3 (LEKOVIT CA) [Concomitant]
  16. GABAPENTIN [Concomitant]
  17. HYPROMELLOSE [Concomitant]
  18. AQUEOUS CREAM (CETOSTEARYL ALCOHOL) [Concomitant]
  19. LORATADINE [Concomitant]

REACTIONS (1)
  - CONTUSION [None]
